FAERS Safety Report 13385173 (Version 1)
Quarter: 2017Q1

REPORT INFORMATION
  Report Type: Other
  Country: GB (occurrence: EG)
  Receive Date: 20170329
  Receipt Date: 20170329
  Transmission Date: 20170429
  Serious: Yes (Other)
  Sender: FDA-Public Use
  Company Number: EG-INTERNATIONAL MEDICATION SYSTEMS, LIMITED-1064804

PATIENT
  Age: 78 Year
  Sex: Female

DRUGS (8)
  1. DIGOXIN. [Concomitant]
     Active Substance: DIGOXIN
  2. FUROSEMIDE. [Concomitant]
     Active Substance: FUROSEMIDE
  3. AMPICILLIN (AMPICILLIN SODIUM) [Concomitant]
     Active Substance: AMPICILLIN SODIUM
  4. GENTAMICIN. [Concomitant]
     Active Substance: GENTAMICIN
  5. 2% LIGNOCAINE [Suspect]
     Active Substance: LIDOCAINE
     Indication: SPINAL ANAESTHESIA
  6. 0.5% BUPIVACAINE HEAVY [Suspect]
     Active Substance: BUPIVACAINE
  7. FENTANYL. [Suspect]
     Active Substance: FENTANYL
  8. RINGERS [Concomitant]
     Active Substance: CALCIUM CHLORIDE\POTASSIUM CHLORIDE\SODIUM CHLORIDE

REACTIONS (3)
  - Seizure [Recovered/Resolved]
  - Hypotension [Recovered/Resolved]
  - Altered state of consciousness [Recovered/Resolved]
